FAERS Safety Report 5114603-2 (Version None)
Quarter: 2006Q3

REPORT INFORMATION
  Report Type: 
  Country: None (occurrence: None)
  Receive Date: 20060926
  Receipt Date: 20060314
  Transmission Date: 20061208
  Serious: Yes (Other)
  Sender: FDA-Public Use
  Company Number: US-ROCHE-440491

PATIENT
  Age: 42 Year
  Sex: Male
  Weight: 122.5 kg

DRUGS (7)
  1. PEGASYS [Suspect]
     Indication: HEPATITIS C
     Route: 058
     Dates: start: 20030915, end: 20040515
  2. PEGASYS [Suspect]
     Route: 058
     Dates: start: 20050415, end: 20050615
  3. PEGASYS [Suspect]
     Route: 058
     Dates: start: 20051015
  4. COPEGUS [Suspect]
     Indication: HEPATITIS C
     Route: 048
     Dates: start: 20030915, end: 20040515
  5. COPEGUS [Suspect]
     Route: 048
     Dates: start: 20050415, end: 20050615
  6. COPEGUS [Suspect]
     Route: 048
     Dates: start: 20051015
  7. PROZAC [Suspect]
     Indication: DRUG USE FOR UNKNOWN INDICATION
     Route: 065
     Dates: start: 20051115, end: 20060115

REACTIONS (22)
  - ABDOMINAL PAIN [None]
  - ANGER [None]
  - ANXIETY [None]
  - CHOKING SENSATION [None]
  - DEPRESSION [None]
  - DIARRHOEA [None]
  - DIZZINESS [None]
  - DYSGEUSIA [None]
  - DYSPNOEA [None]
  - FATIGUE [None]
  - FLUSHING [None]
  - GASTROOESOPHAGEAL REFLUX DISEASE [None]
  - HEADACHE [None]
  - HOMICIDAL IDEATION [None]
  - INFLUENZA LIKE ILLNESS [None]
  - INSOMNIA [None]
  - MUSCLE SPASMS [None]
  - NAUSEA [None]
  - PARANOIA [None]
  - RETCHING [None]
  - VOMITING [None]
  - WEIGHT DECREASED [None]
